FAERS Safety Report 7209484-7 (Version None)
Quarter: 2011Q1

REPORT INFORMATION
  Report Type: 
  Country: None (occurrence: None)
  Receive Date: 20110104
  Receipt Date: 20101230
  Transmission Date: 20110831
  Serious: Yes (Death, Congenital Anomaly, Other)
  Sender: FDA-Public Use
  Company Number: FR-B.I. PHARMACEUTICALS,INC./RIDGEFIELD-2010-FF-00304FF

PATIENT
  Sex: Male

DRUGS (3)
  1. MOBIC [Suspect]
     Indication: DRUG EXPOSURE DURING PREGNANCY
     Dosage: 15 MG
     Route: 064
     Dates: start: 20100118, end: 20100123
  2. OPIOIDS [Concomitant]
     Indication: DRUG EXPOSURE DURING PREGNANCY
  3. IBUPROFEN [Suspect]
     Indication: DRUG EXPOSURE DURING PREGNANCY
     Route: 064
     Dates: start: 20100110, end: 20100111

REACTIONS (3)
  - MACROGLOSSIA [None]
  - INTRA-UTERINE DEATH [None]
  - EXOMPHALOS [None]
